FAERS Safety Report 20146814 (Version 1)
Quarter: 2021Q4

REPORT INFORMATION
  Report Type: Spontaneous
  Country: None (occurrence: US)
  Receive Date: 20211203
  Receipt Date: 20211203
  Transmission Date: 20220304
  Serious: No
  Sender: FDA-Public Use
  Company Number: US-Wellstat Therapeutics Corporation-2122667

PATIENT
  Age: 68 Year
  Sex: Female
  Weight: 86.818 kg

DRUGS (3)
  1. VISTOGARD [Suspect]
     Active Substance: URIDINE TRIACETATE
     Indication: Chemotherapy toxicity attenuation
     Route: 048
     Dates: start: 20210312
  2. FLUOROURACIL [Concomitant]
     Active Substance: FLUOROURACIL
  3. MITOMYCIN [Concomitant]
     Active Substance: MITOMYCIN

REACTIONS (2)
  - Arthralgia [Recovering/Resolving]
  - Pain in extremity [Recovering/Resolving]

NARRATIVE: CASE EVENT DATE: 20210312
